FAERS Safety Report 5917969-6 (Version None)
Quarter: 2008Q4

REPORT INFORMATION
  Report Type: 
  Country: None (occurrence: None)
  Receive Date: 20081014
  Receipt Date: 20081002
  Transmission Date: 20090506
  Serious: Yes (Disabling, Other)
  Sender: FDA-Public Use
  Company Number: JP-PFIZER INC-2007088119

PATIENT
  Sex: Male
  Weight: 46 kg

DRUGS (27)
  1. VFEND [Suspect]
     Indication: BRONCHOPULMONARY ASPERGILLOSIS
     Route: 042
     Dates: start: 20071003, end: 20071003
  2. VFEND [Suspect]
     Dosage: DAILY DOSE:270MG
     Route: 042
     Dates: start: 20071004, end: 20071006
  3. VFEND [Suspect]
     Indication: BRONCHOPULMONARY ASPERGILLOSIS
     Route: 048
     Dates: start: 20071007, end: 20071013
  4. VFEND [Suspect]
     Indication: PNEUMONIA NECROTISING
  5. FLAVERIC [Suspect]
     Indication: COUGH
     Route: 048
     Dates: start: 20071008, end: 20071012
  6. PL [Suspect]
     Route: 048
     Dates: start: 20071008, end: 20071012
  7. ANTIBIOTICS [Concomitant]
  8. MEROPENEM TRIHYDRATE [Concomitant]
     Route: 042
     Dates: start: 20070901, end: 20070901
  9. CIPROFLOXACIN HYDROCHLORIDE [Concomitant]
     Dates: start: 20070901, end: 20070901
  10. AMPICILLIN SODIUM/SULBACTAM SODIUM [Concomitant]
     Route: 042
     Dates: start: 20070901
  11. CLINDAMYCIN HCL [Concomitant]
     Dates: start: 20070901
  12. DORIPENEM [Concomitant]
     Route: 042
     Dates: start: 20070101, end: 20071001
  13. MINOCYCLINE HYDROCHLORIDE [Concomitant]
     Dates: start: 20070101
  14. CLARITHROMYCIN [Concomitant]
     Route: 048
     Dates: end: 20071001
  15. HALCION [Concomitant]
     Route: 048
     Dates: end: 20071001
  16. HERBAL PREPARATION [Concomitant]
     Route: 048
  17. SELBEX [Concomitant]
     Route: 048
  18. SPIRIVA [Concomitant]
  19. DIGOXIN [Concomitant]
     Route: 048
  20. TAKEPRON [Concomitant]
     Route: 048
  21. THEOPHYLLINE [Concomitant]
     Route: 048
  22. THEOLONG [Concomitant]
     Route: 048
     Dates: start: 20070101
  23. LUVOX [Concomitant]
     Route: 048
  24. FLUTIDE DISKUS [Concomitant]
  25. SEREVENT [Concomitant]
  26. PURSENNID [Concomitant]
     Route: 048
     Dates: start: 20070101
  27. CALONAL [Concomitant]
     Route: 048
     Dates: start: 20070101

REACTIONS (8)
  - ANOREXIA [None]
  - DIZZINESS [None]
  - FALL [None]
  - HALLUCINATION [None]
  - LIVER DISORDER [None]
  - MALAISE [None]
  - NAUSEA [None]
  - VISUAL IMPAIRMENT [None]
